FAERS Safety Report 17740673 (Version 1)
Quarter: 2020Q2

REPORT INFORMATION
  Report Type: Spontaneous
  Country: US (occurrence: US)
  Receive Date: 20200503
  Receipt Date: 20200503
  Transmission Date: 20200714
  Serious: Yes (Hospitalization, Other)
  Sender: FDA-Public Use
  Company Number: None

PATIENT
  Age: 15 Year
  Sex: Male
  Weight: 82 kg

DRUGS (2)
  1. .DELTA.8-TETRAHYDROCANNABINOL\DEVICE\HERBALS [Suspect]
     Active Substance: .DELTA.8-TETRAHYDROCANNABINOL\DEVICE\HERBALS
     Dates: start: 20200330, end: 20200417
  2. THC VAPING [Suspect]
     Active Substance: .DELTA.8-TETRAHYDROCANNABINOL\DEVICE\HERBALS

REACTIONS (7)
  - Brain natriuretic peptide increased [None]
  - Lung opacity [None]
  - Hypoxia [None]
  - Lung infiltration [None]
  - Serum ferritin increased [None]
  - Lung consolidation [None]
  - C-reactive protein increased [None]

NARRATIVE: CASE EVENT DATE: 20200430
